FAERS Safety Report 24145839 (Version 1)
Quarter: 2024Q3

REPORT INFORMATION
  Report Type: Spontaneous
  Country: JP (occurrence: JP)
  Receive Date: 20240729
  Receipt Date: 20240729
  Transmission Date: 20241016
  Serious: Yes (Other)
  Sender: ORGANON
  Company Number: JP-ORGANON-O2407JPN002390

PATIENT
  Age: 48 Year
  Sex: Male

DRUGS (1)
  1. BONALON [Suspect]
     Active Substance: ALENDRONATE SODIUM
     Dosage: 35 MILLIGRAM, PER WEEK
     Route: 048
     Dates: start: 202303, end: 202304

REACTIONS (1)
  - Drug-induced liver injury [Unknown]
